FAERS Safety Report 4576522-X (Version None)
Quarter: 2005Q1

REPORT INFORMATION
  Report Type: 
  Country: None (occurrence: None)
  Receive Date: 20050209
  Receipt Date: 20050107
  Transmission Date: 20050727
  Serious: Yes (Other)
  Sender: FDA-Public Use
  Company Number: FR-MERCK-0501USA00884

PATIENT
  Age: 61 Year
  Sex: Male

DRUGS (6)
  1. ZOCOR [Suspect]
     Indication: DYSLIPIDAEMIA
     Route: 048
     Dates: start: 20041016, end: 20050102
  2. KARDEGIC [Concomitant]
     Indication: CORONARY ARTERY DISEASE
     Route: 048
     Dates: start: 20041114
  3. PLAVIX [Concomitant]
     Indication: CORONARY ARTERY DISEASE
     Route: 048
     Dates: start: 20041114, end: 20050110
  4. TRIATEC [Concomitant]
     Route: 048
     Dates: start: 20041014, end: 20050109
  5. ZINNAT [Concomitant]
     Indication: BRONCHIAL INFECTION
     Route: 048
     Dates: start: 20041223, end: 20041228
  6. OMEPRAZOLE [Concomitant]
     Route: 048
     Dates: start: 20040914, end: 20050109

REACTIONS (4)
  - COMPARTMENT SYNDROME [None]
  - HEPATITIS [None]
  - RHABDOMYOLYSIS [None]
  - TRISMUS [None]
